FAERS Safety Report 9160477 (Version 2)
Quarter: 2013Q3

REPORT INFORMATION
  Report Type: Spontaneous
  Country: JP (occurrence: JP)
  Receive Date: 20130313
  Receipt Date: 20130812
  Transmission Date: 20140515
  Serious: Yes (Life-Threatening, Hospitalization, Other)
  Sender: FDA-Public Use
  Company Number: JP-CELGENEUS-087-21880-13030481

PATIENT
  Age: 81 Year
  Sex: Female

DRUGS (27)
  1. REVLIMID [Suspect]
     Indication: PLASMA CELL MYELOMA
     Dosage: 15 MILLIGRAM
     Route: 048
     Dates: start: 20101021, end: 20101110
  2. REVLIMID [Suspect]
     Dosage: 15 MILLIGRAM
     Route: 048
     Dates: start: 20101119, end: 20101209
  3. REVLIMID [Suspect]
     Dosage: 15 MILLIGRAM
     Route: 048
     Dates: start: 20101217, end: 20110106
  4. REVLIMID [Suspect]
     Dosage: 10 MILLIGRAM
     Route: 048
     Dates: start: 20110204, end: 20110224
  5. REVLIMID [Suspect]
     Dosage: 10 MILLIGRAM
     Route: 048
     Dates: start: 20110311, end: 20110331
  6. REVLIMID [Suspect]
     Dosage: 10 MILLIGRAM
     Route: 048
     Dates: start: 20110408, end: 20110428
  7. REVLIMID [Suspect]
     Dosage: 10 MILLIGRAM
     Route: 048
     Dates: end: 20130215
  8. DECADRON [Concomitant]
     Indication: PLASMA CELL MYELOMA
     Dosage: 20 MILLIGRAM
     Route: 048
     Dates: start: 20101021, end: 20101024
  9. DECADRON [Concomitant]
     Dosage: 20 MILLIGRAM
     Route: 048
     Dates: start: 20101119, end: 20101122
  10. DECADRON [Concomitant]
     Dosage: 20 MILLIGRAM
     Route: 048
     Dates: start: 20101127, end: 20101130
  11. DECADRON [Concomitant]
     Dosage: 20 MILLIGRAM
     Route: 048
     Dates: start: 20110204, end: 20110207
  12. DECADRON [Concomitant]
     Dosage: 20 MILLIGRAM
     Route: 048
     Dates: start: 20110212, end: 20110215
  13. DECADRON [Concomitant]
     Dosage: 10 MILLIGRAM
     Route: 048
     Dates: start: 20110311, end: 20110314
  14. DECADRON [Concomitant]
     Dosage: 10 MILLIGRAM
     Route: 048
     Dates: start: 20110319, end: 20110322
  15. DECADRON [Concomitant]
     Dosage: 10 MILLIGRAM
     Route: 048
     Dates: start: 20110327, end: 20110330
  16. DECADRON [Concomitant]
     Dosage: 10 MILLIGRAM
     Route: 048
     Dates: start: 20110408, end: 20110411
  17. DECADRON [Concomitant]
     Dosage: 10 MILLIGRAM
     Route: 048
     Dates: start: 20110416, end: 20110419
  18. DECADRON [Concomitant]
     Dosage: 10 MILLIGRAM
     Route: 048
     Dates: start: 20110424, end: 20110427
  19. DECADRON [Concomitant]
     Dosage: 20 MILLIGRAM
     Route: 048
     Dates: start: 20111217, end: 20111220
  20. DECADRON [Concomitant]
     Dosage: 20 MILLIGRAM
     Route: 048
     Dates: start: 20111225, end: 20111228
  21. BAYASPIRIN [Concomitant]
     Indication: PROPHYLAXIS
     Dosage: 100 MILLIGRAM
     Route: 048
     Dates: start: 20101021
  22. PARIET [Concomitant]
     Indication: PROPHYLAXIS
     Dosage: 10 MILLIGRAM
     Route: 048
     Dates: start: 20101021
  23. GASMOTIN [Concomitant]
     Indication: PROPHYLAXIS
     Dosage: 15 MILLIGRAM
     Route: 048
     Dates: start: 20101021
  24. BIOFERMIN [Concomitant]
     Indication: PROPHYLAXIS
     Dosage: 9 GRAM
     Route: 048
     Dates: start: 20101021
  25. SODIUM RABEPRAZOLE [Concomitant]
     Indication: PROPHYLAXIS
     Dosage: 10 MILLIGRAM
     Route: 048
     Dates: start: 20110204
  26. PURSENNID [Concomitant]
     Indication: PROPHYLAXIS
     Dosage: 48 MILLIGRAM
     Route: 048
     Dates: start: 20110204
  27. MECOBALAMIN [Concomitant]
     Indication: PRODUCT USED FOR UNKNOWN INDICATION
     Dosage: 1500 MICROGRAM
     Route: 048
     Dates: start: 20110513

REACTIONS (1)
  - Squamous cell carcinoma [Unknown]
